FAERS Safety Report 8580240-0 (Version None)
Quarter: 2012Q3

REPORT INFORMATION
  Report Type: 
  Country: None (occurrence: None)
  Receive Date: 20120808
  Receipt Date: 20120803
  Transmission Date: 20120928
  Serious: Yes (Hospitalization, Other)
  Sender: FDA-Public Use
  Company Number: FR-PFIZER INC-2012188711

PATIENT
  Age: 41 Year
  Sex: Female

DRUGS (10)
  1. IBUPROFEN + PSEUDOEPHEDRINE HCL [Suspect]
     Indication: SINUSITIS
     Dosage: 2 DF, 1X/DAY
     Route: 048
     Dates: start: 20120101, end: 20120130
  2. PHOLCODINE TAB [Suspect]
     Indication: SINUSITIS
     Dosage: 1 DF, 1X/DAY
     Route: 048
     Dates: start: 20120101, end: 20120130
  3. ACETAMINOPHEN AND TRAMADOL HCL [Concomitant]
     Dosage: UNK
  4. LEVOTHYROXINE SODIUM [Concomitant]
     Dosage: UNK
  5. LEXOMIL [Concomitant]
     Dosage: UNK
  6. EFFEXOR [Concomitant]
     Dosage: UNK
  7. PYOSTACINE [Suspect]
     Indication: SINUSITIS
     Dosage: UNK
     Route: 048
     Dates: start: 20120130, end: 20120130
  8. AMITRIPTYLINE HYDROCHLORIDE [Concomitant]
     Dosage: UNK
  9. NOCTAMID [Concomitant]
     Dosage: UNK
  10. ENALAPRIL MALEATE [Concomitant]
     Dosage: UNK

REACTIONS (6)
  - RESPIRATORY DISORDER [None]
  - PRURITUS [None]
  - ERYTHEMA [None]
  - DYSPNOEA [None]
  - FACE OEDEMA [None]
  - DRUG INEFFECTIVE [None]
